FAERS Safety Report 5407147-1 (Version None)
Quarter: 2007Q3

REPORT INFORMATION
  Report Type: 
  Country: None (occurrence: None)
  Receive Date: 20070807
  Receipt Date: 20070724
  Transmission Date: 20080115
  Serious: Yes (Other)
  Sender: FDA-Public Use
  Company Number: B0480549A

PATIENT
  Sex: Female

DRUGS (2)
  1. CONTAC NON-DROWSY 12-HOUR RELIEF [Suspect]
     Route: 048
     Dates: start: 20070708, end: 20070713
  2. INNOZIDE [Concomitant]

REACTIONS (4)
  - CHOKING [None]
  - DRUG INEFFECTIVE [None]
  - LACRIMATION INCREASED [None]
  - SNEEZING [None]
